FAERS Safety Report 8444907-7 (Version None)
Quarter: 2012Q2

REPORT INFORMATION
  Report Type: 
  Country: None (occurrence: None)
  Receive Date: 20120323
  Receipt Date: 20110817
  Transmission Date: 20120825
  Serious: Yes (Other)
  Sender: FDA-Public Use
  Company Number: 163-21880-11082146

PATIENT
  Age: 69 Year
  Sex: Male
  Weight: 84.5 kg

DRUGS (7)
  1. REVLIMID [Suspect]
     Indication: MULTIPLE MYELOMA
     Dosage: 25 MG, 1 IN 1 D, PO 25 MG, FOR 21 DAYS, PO 15 MG, 1 IN 1 D, PO
     Route: 048
     Dates: start: 20110301
  2. REVLIMID [Suspect]
     Indication: MULTIPLE MYELOMA
     Dosage: 25 MG, 1 IN 1 D, PO 25 MG, FOR 21 DAYS, PO 15 MG, 1 IN 1 D, PO
     Route: 048
     Dates: start: 20110801
  3. REVLIMID [Suspect]
     Indication: MULTIPLE MYELOMA
     Dosage: 25 MG, 1 IN 1 D, PO 25 MG, FOR 21 DAYS, PO 15 MG, 1 IN 1 D, PO
     Route: 048
     Dates: start: 20100601
  4. LOPRESSOR [Concomitant]
  5. ABILIFY (ARIPIPRAZOLE) (UNKNOWN) [Concomitant]
  6. NUVIGIL (ARMODAFINIL) (UNKNOWN) [Concomitant]
  7. LIPITOR [Concomitant]

REACTIONS (1)
  - NEUTROPENIA [None]
